FAERS Safety Report 20994188 (Version 2)
Quarter: 2022Q3

REPORT INFORMATION
  Report Type: Spontaneous
  Country: PT (occurrence: PT)
  Receive Date: 20220622
  Receipt Date: 20220804
  Transmission Date: 20221026
  Serious: Yes (Other)
  Sender: FDA-Public Use
  Company Number: PT-MYLANLABS-2022M1046904

PATIENT
  Age: 75 Year
  Sex: Male

DRUGS (14)
  1. LEUCOVORIN [Suspect]
     Active Substance: LEUCOVORIN
     Indication: Colorectal adenocarcinoma
     Dosage: UNK, RECEIVED FOLFIRI REGIMEN FOR 8-CYCLES.
     Route: 065
     Dates: start: 201804
  2. LEUCOVORIN [Suspect]
     Active Substance: LEUCOVORIN
     Dosage: UNK, SECOND LINE THERAPY WITH FOLFOX REGIMEN FOR 5-CYCLES
     Route: 065
  3. FLUOROURACIL [Suspect]
     Active Substance: FLUOROURACIL
     Indication: Colorectal adenocarcinoma
     Dosage: UNK, RECEIVED FOLFIRI REGIMEN FOR 8-CYCLES.
     Route: 065
     Dates: start: 201804
  4. FLUOROURACIL [Suspect]
     Active Substance: FLUOROURACIL
     Dosage: UNK, SECOND LINE THERAPY WITH FOLFOX REGIMEN FOR 5-CYCLES
     Route: 065
  5. BEVACIZUMAB [Suspect]
     Active Substance: BEVACIZUMAB
     Indication: Colorectal adenocarcinoma
     Dosage: UNK, SECOND LINE THERAPY FOR 5-CYCLES
     Route: 065
  6. TRIFLURIDINE [Suspect]
     Active Substance: TRIFLURIDINE
     Indication: Colorectal adenocarcinoma
     Dosage: UNK, FOURTH LINE THERAPY
     Route: 065
  7. OXALIPLATIN [Suspect]
     Active Substance: OXALIPLATIN
     Indication: Colorectal adenocarcinoma
     Dosage: UNK, SECOND LINE THERAPY WITH FOLFOX REGIMEN FOR 5-CYCLES
     Route: 065
  8. TIPIRACIL [Suspect]
     Active Substance: TIPIRACIL
     Indication: Colorectal adenocarcinoma
     Dosage: UNK, FOURTH LINE THERAPY
     Route: 065
  9. CAPECITABINE [Concomitant]
     Active Substance: CAPECITABINE
     Indication: Colorectal adenocarcinoma
     Dosage: 1000 MILLIGRAM/SQ. METER, A TOTAL OF 1800 MG TWICE A DAY....
     Route: 065
  10. CETUXIMAB [Concomitant]
     Active Substance: CETUXIMAB
     Indication: Colorectal adenocarcinoma
     Dosage: UNK, THIRD LINE THERAPY FOR 6-CYCLES
     Route: 065
     Dates: start: 201901
  11. CARVEDILOL [Concomitant]
     Active Substance: CARVEDILOL
     Indication: Hypertension
     Dosage: UNK
     Route: 065
  12. NIFEDIPINE [Concomitant]
     Active Substance: NIFEDIPINE
     Indication: Hypertension
     Dosage: UNK
     Route: 065
  13. METHYLDOPA [Concomitant]
     Active Substance: METHYLDOPA
     Indication: Hypertension
     Dosage: UNK
     Route: 065
  14. CHLORTHALIDONE [Concomitant]
     Active Substance: CHLORTHALIDONE
     Indication: Product used for unknown indication
     Dosage: UNK
     Route: 065

REACTIONS (1)
  - Drug ineffective [Unknown]
